FAERS Safety Report 18399383 (Version 5)
Quarter: 2024Q1

REPORT INFORMATION
  Report Type: Spontaneous
  Country: US (occurrence: US)
  Receive Date: 20201019
  Receipt Date: 20240222
  Transmission Date: 20240410
  Serious: Yes (Other)
  Sender: FDA-Public Use
  Company Number: US-PFIZER INC-2020398541

PATIENT
  Age: 68 Year
  Sex: Female

DRUGS (19)
  1. BOSULIF [Suspect]
     Active Substance: BOSUTINIB MONOHYDRATE
     Indication: Chronic myeloid leukaemia
     Dosage: 400 MG, 1X/DAY
     Route: 048
     Dates: start: 202008
  2. BOSULIF [Suspect]
     Active Substance: BOSUTINIB MONOHYDRATE
     Dosage: 100 MG, CYCLIC, (FOR 3 WEEKS)
     Route: 048
  3. BOSULIF [Suspect]
     Active Substance: BOSUTINIB MONOHYDRATE
     Dosage: 200 MG, CYCLIC, (FOR 2-3 WEEKS)
     Route: 048
  4. BOSULIF [Suspect]
     Active Substance: BOSUTINIB MONOHYDRATE
     Dosage: 300 MG, 1X/DAY
     Route: 048
     Dates: end: 20211027
  5. BENADRYL [Concomitant]
     Active Substance: DIPHENHYDRAMINE HYDROCHLORIDE
     Indication: Pruritus
     Dosage: 1 IN THE MORNING AND 1 AT NIGHT
  6. IBUPROFEN [Concomitant]
     Active Substance: IBUPROFEN
  7. VALIUM [Concomitant]
     Active Substance: DIAZEPAM
  8. ESGIC [Concomitant]
     Active Substance: ACETAMINOPHEN\BUTALBITAL\CAFFEINE
  9. REGELAN [METOCLOPRAMIDE] [Concomitant]
     Indication: Nausea
     Dosage: 5 MG
  10. ONDANSETRON HYDROCHLORIDE [Concomitant]
     Active Substance: ONDANSETRON HYDROCHLORIDE
     Dosage: 8 MG
  11. BYSTOLIC [Concomitant]
     Active Substance: NEBIVOLOL HYDROCHLORIDE
     Indication: Hypertension
     Dosage: 10 MG
  12. METHOCARBAMOL [Concomitant]
     Active Substance: METHOCARBAMOL
     Indication: Muscle spasms
     Dosage: 500 MG
  13. PEPCID AC [Concomitant]
     Active Substance: FAMOTIDINE
     Dosage: 20 MG IN THE MORNING AND ONE AT NIGHT
  14. POTASSIUM CITRATE [Concomitant]
     Active Substance: POTASSIUM CITRATE
     Indication: Nephrolithiasis
     Dosage: 15 MEQ, 2X/DAY
  15. DICYCLOMINE [Concomitant]
     Active Substance: DICYCLOMINE HYDROCHLORIDE
     Indication: Abdominal pain upper
  16. ATROPINE\DIPHENOXYLATE [Concomitant]
     Active Substance: ATROPINE\DIPHENOXYLATE
     Indication: Diarrhoea
     Dosage: 2.5 MG
  17. SUDAFED [Concomitant]
     Active Substance: PSEUDOEPHEDRINE HYDROCHLORIDE
     Indication: Sinus disorder
     Dosage: 120 MG, 2X/DAY
  18. MUCINEX ALLERGY [Concomitant]
     Active Substance: FEXOFENADINE HYDROCHLORIDE
     Dosage: 600 MG
  19. LUMIGAN [Concomitant]
     Active Substance: BIMATOPROST
     Indication: Glaucoma
     Dosage: UNK

REACTIONS (20)
  - Cataract [Unknown]
  - Glaucoma [Unknown]
  - Illness [Unknown]
  - Throat irritation [Unknown]
  - Vomiting [Recovered/Resolved]
  - Diarrhoea [Not Recovered/Not Resolved]
  - Dehydration [Unknown]
  - Fatigue [Unknown]
  - Weight increased [Unknown]
  - Neoplasm progression [Unknown]
  - Dry eye [Recovering/Resolving]
  - Abdominal pain upper [Recovering/Resolving]
  - Nausea [Unknown]
  - Eczema [Recovering/Resolving]
  - Dry skin [Not Recovered/Not Resolved]
  - Dry mouth [Unknown]
  - Bone pain [Recovered/Resolved]
  - Rash pruritic [Recovering/Resolving]
  - Dysphagia [Not Recovered/Not Resolved]
  - Corneal erosion [Not Recovered/Not Resolved]

NARRATIVE: CASE EVENT DATE: 20200101
